FAERS Safety Report 20959046 (Version 1)
Quarter: 2022Q2

REPORT INFORMATION
  Report Type: Spontaneous
  Country: IT (occurrence: IT)
  Receive Date: 20220614
  Receipt Date: 20220614
  Transmission Date: 20220721
  Serious: Yes (Death, Other)
  Sender: FDA-Public Use
  Company Number: IT-CELLTRION HEALTHCARE HUNGARY KFT-2022IT008003

PATIENT

DRUGS (11)
  1. DOXORUBICIN [Suspect]
     Active Substance: DOXORUBICIN
     Indication: Burkitt^s lymphoma
     Dosage: 50 MILLIGRAM/SQ. METER (50 MG/M2 ON DAY 29 POST INDUCTION)
     Route: 040
  2. CISPLATIN [Suspect]
     Active Substance: CISPLATIN
     Indication: Burkitt^s lymphoma
     Dosage: 20 MILLIGRAM/SQ. METER, QD (20 MG/M2/D BY 24-HOUR INFUSION)
  3. METHOTREXATE [Suspect]
     Active Substance: METHOTREXATE
     Indication: Burkitt^s lymphoma
     Dosage: UNK (3 G/M2 OVER 6 HRS WITH LEUCOVORIN RESCUE THERAPY ON DAY7, DAY21 POST INDUCTION)
     Route: 042
  4. METHYLPREDNISOLONE [Suspect]
     Active Substance: METHYLPREDNISOLONE
     Indication: Burkitt^s lymphoma
     Dosage: UNK (0.5-1 MG/KG/D ON DAY2, DAY1 PRE INDUCTION, ON DAY OF INDUCTION, DAY1 POST INDUCTION)
     Route: 042
  5. CYTARABINE\METHOTREXATE [Suspect]
     Active Substance: CYTARABINE\METHOTREXATE
     Indication: Burkitt^s lymphoma
     Dosage: UNK (METHOTREXATE 12MG+CYTARABINE 50MG+STEROOIDS (HYDROCORTISONE) 40MG ON DAY5, DAY19, DAY29)
     Route: 037
  6. VINCRISTINE [Suspect]
     Active Substance: VINCRISTINE
     Indication: Burkitt^s lymphoma
     Dosage: 2 MILLIGRAM (VINCRISTINE 2 MG TOTAL DOSE ON THE DAY OF INDUCTION AND DAY 36 POST INDUCTION)
     Route: 040
  7. CYTARABINE [Suspect]
     Active Substance: CYTARABINE
     Indication: Burkitt^s lymphoma
     Dosage: 750 MILLIGRAM/SQ. METER (750 MG/M2, 3 HRS LATER BY 1G/M2 BY 24HR INFUSION DAY50-53
  8. ETOPOSIDE [Suspect]
     Active Substance: ETOPOSIDE
     Indication: Burkitt^s lymphoma
     Dosage: 250 MILLIGRAM/SQ. METER, BID (250 MG/M2 EVERY 12 HOURS ON DAY 15 POST INDUCATION)
  9. CYCLOPHOSPHAMIDE [Suspect]
     Active Substance: CYCLOPHOSPHAMIDE
     Indication: Burkitt^s lymphoma
     Dosage: 500 MILLIGRAM/SQ. METER (500 MG/M2 OVER 1HR INFUSION ON INDUCTION AND DAY1 POST INDUCTION)
  10. CYCLOPHOSPHAMIDE [Suspect]
     Active Substance: CYCLOPHOSPHAMIDE
     Dosage: 500 MILLIGRAM/SQ. METER (500 MG/M2 OVER 1HR INFUSION ON INDUCTION AND DAY1 POST INDUCTION)
  11. RITUXIMAB [Suspect]
     Active Substance: RITUXIMAB
     Indication: Burkitt^s lymphoma
     Dosage: 375 MILLIGRAM/SQ. METER (DAY2, DAY14, DAY29 AND DAY36 POST INDUCTION DAY 56

REACTIONS (5)
  - Lymphoma [Fatal]
  - Disease progression [Fatal]
  - Sepsis [Fatal]
  - Disease recurrence [Unknown]
  - Off label use [Unknown]
